FAERS Safety Report 20254436 (Version 1)
Quarter: 2021Q4

REPORT INFORMATION
  Report Type: Other
  Country: US (occurrence: None)
  Receive Date: 20211230
  Receipt Date: 20211230
  Transmission Date: 20220303
  Serious: No
  Sender: FDA-Public Use
  Company Number: US-ROCHE-2987478

PATIENT
  Sex: Female

DRUGS (1)
  1. OCREVUS [Suspect]
     Active Substance: OCRELIZUMAB
     Indication: Multiple sclerosis
     Dosage: 15/APR/2021, NEXT DOSE RECEIVED?THEN 600 MG EVERY 6 MONTHS
     Route: 042
     Dates: start: 20210401

REACTIONS (1)
  - Influenza [Recovering/Resolving]
